FAERS Safety Report 14033800 (Version 1)
Quarter: 2017Q4

REPORT INFORMATION
  Report Type: Spontaneous
  Country: US (occurrence: US)
  Receive Date: 20171003
  Receipt Date: 20171003
  Transmission Date: 20180321
  Serious: Yes (Other)
  Sender: FDA-Public Use
  Company Number: None

PATIENT
  Age: 17 Year
  Sex: Female
  Weight: 71.1 kg

DRUGS (4)
  1. VENLAFAXINE HCL [Suspect]
     Active Substance: VENLAFAXINE HYDROCHLORIDE
     Indication: POSTURAL ORTHOSTATIC TACHYCARDIA SYNDROME
     Dosage: ?          QUANTITY:30 TABLET(S);?
     Route: 048
  2. TIZANIDINE. [Concomitant]
     Active Substance: TIZANIDINE
  3. BYSTOLIC [Concomitant]
     Active Substance: NEBIVOLOL HYDROCHLORIDE
  4. MAGNESIUM [Concomitant]
     Active Substance: MAGNESIUM

REACTIONS (7)
  - Nausea [None]
  - Agitation [None]
  - Nervousness [None]
  - Muscle twitching [None]
  - Middle insomnia [None]
  - Migraine [None]
  - Restlessness [None]

NARRATIVE: CASE EVENT DATE: 20170926
